FAERS Safety Report 6866980-X (Version None)
Quarter: 2010Q3

REPORT INFORMATION
  Report Type: 
  Country: None (occurrence: None)
  Receive Date: 20100722
  Receipt Date: 20100714
  Transmission Date: 20110219
  Serious: Yes (Hospitalization)
  Sender: FDA-Public Use
  Company Number: GB-ROCHE-709059

PATIENT
  Sex: Female

DRUGS (4)
  1. BEVACIZUMAB [Suspect]
     Indication: COLORECTAL CANCER
     Dosage: DOSE: 550, FORM: INFUSION, LAST DOSE PRIOR TO SAE: 25 MAY 2010.
     Route: 042
     Dates: start: 20100504
  2. BEVACIZUMAB [Suspect]
     Route: 042
     Dates: start: 20100712
  3. CAPECITABINE [Suspect]
     Indication: COLORECTAL CANCER
     Dosage: DOSE: 63000, LAST DOSE PRIOR TO SAE: 25 MAY 2010
     Route: 048
     Dates: start: 20100504
  4. CAPECITABINE [Suspect]
     Route: 048
     Dates: start: 20100712

REACTIONS (1)
  - ENTERITIS [None]
